FAERS Safety Report 11425922 (Version 2)
Quarter: 2015Q3

REPORT INFORMATION
  Report Type: Spontaneous
  Country: US (occurrence: US)
  Receive Date: 20150821
  Receipt Date: 20150903
  Transmission Date: 20151125
  Serious: No
  Sender: FDA-Public Use
  Company Number: US-ELI_LILLY_AND_COMPANY-US201012003661

PATIENT
  Sex: Male

DRUGS (8)
  1. HUMULIN N [Suspect]
     Active Substance: INSULIN HUMAN
     Indication: DIABETES MELLITUS
     Dosage: UNK, AS NEEDED
     Dates: start: 1990, end: 201012
  2. HUMALOG [Suspect]
     Active Substance: INSULIN LISPRO
  3. HUMULIN N [Suspect]
     Active Substance: INSULIN HUMAN
     Dosage: 40 U, EACH EVENING
     Dates: start: 201012
  4. HUMULIN N [Suspect]
     Active Substance: INSULIN HUMAN
     Dosage: 30 U, 2/D
     Dates: start: 201012
  5. HUMALOG [Suspect]
     Active Substance: INSULIN LISPRO
  6. HUMALOG [Suspect]
     Active Substance: INSULIN LISPRO
  7. HUMALOG [Suspect]
     Active Substance: INSULIN LISPRO
  8. LANTUS [Concomitant]
     Active Substance: INSULIN GLARGINE
     Dosage: 65 U, EACH EVENING

REACTIONS (1)
  - Intercepted drug dispensing error [Recovered/Resolved]

NARRATIVE: CASE EVENT DATE: 20101203
